FAERS Safety Report 10488553 (Version 2)
Quarter: 2014Q4

REPORT INFORMATION
  Report Type: Spontaneous
  Country: US (occurrence: US)
  Receive Date: 20141002
  Receipt Date: 20141223
  Transmission Date: 20150528
  Serious: Yes (Death, Other)
  Sender: FDA-Public Use
  Company Number: US-TEVA-512556USA

PATIENT
  Sex: Female

DRUGS (1)
  1. ACTIQ [Suspect]
     Active Substance: FENTANYL CITRATE
     Route: 048

REACTIONS (2)
  - Carcinoid tumour [Fatal]
  - Cancer pain [Unknown]

NARRATIVE: CASE EVENT DATE: 2012
